FAERS Safety Report 10004058 (Version 1)
Quarter: 2014Q1

REPORT INFORMATION
  Report Type: Report from Study
  Country: US (occurrence: US)
  Receive Date: 20140312
  Receipt Date: 20140312
  Transmission Date: 20141002
  Serious: Yes (Other)
  Sender: FDA-Public Use
  Company Number: US-ABBVIE-14P-163-1210431-00

PATIENT
  Sex: Female
  Weight: 136.2 kg

DRUGS (1)
  1. LUPRON DEPOT [Suspect]
     Indication: INFERTILITY FEMALE
     Dosage: ONCE
     Dates: start: 2005, end: 2005

REACTIONS (1)
  - Abortion spontaneous [Unknown]
